FAERS Safety Report 11054325 (Version 5)
Quarter: 2015Q4

REPORT INFORMATION
  Report Type: Report from Study
  Country: US (occurrence: US)
  Receive Date: 20150422
  Receipt Date: 20151113
  Transmission Date: 20160304
  Serious: Yes (Hospitalization, Other)
  Sender: FDA-Public Use
  Company Number: US-ALEXION-A201501335

PATIENT
  Sex: Male

DRUGS (1)
  1. SOLIRIS [Suspect]
     Active Substance: ECULIZUMAB
     Indication: HAEMOLYTIC URAEMIC SYNDROME
     Dosage: UNK
     Route: 042

REACTIONS (8)
  - Disturbance in attention [Unknown]
  - Disturbance in attention [Recovered/Resolved]
  - Unevaluable event [Unknown]
  - Chest pain [Unknown]
  - Cold sweat [Unknown]
  - Pancreatitis acute [Unknown]
  - Binge drinking [Unknown]
  - Fatigue [Not Recovered/Not Resolved]
